FAERS Safety Report 12241107 (Version 16)
Quarter: 2017Q3

REPORT INFORMATION
  Report Type: Report from Study
  Country: CA (occurrence: CA)
  Receive Date: 20160406
  Receipt Date: 20170910
  Transmission Date: 20171127
  Serious: Yes (Death, Hospitalization, Other)
  Sender: FDA-Public Use
  Company Number: CA-ROCHE-1533922

PATIENT
  Age: 79 Year
  Sex: Female
  Weight: 75 kg

DRUGS (13)
  1. XARELTO [Concomitant]
     Active Substance: RIVAROXABAN
  2. METHOTREXATE. [Concomitant]
     Active Substance: METHOTREXATE
  3. ACTEMRA [Suspect]
     Active Substance: TOCILIZUMAB
     Route: 042
     Dates: start: 20161103, end: 20161201
  4. LASIX [Suspect]
     Active Substance: FUROSEMIDE
     Indication: PRODUCT USED FOR UNKNOWN INDICATION
     Route: 065
  5. PROLIA [Concomitant]
     Active Substance: DENOSUMAB
  6. ACTEMRA [Suspect]
     Active Substance: TOCILIZUMAB
     Indication: RHEUMATOID ARTHRITIS
     Route: 042
     Dates: start: 20150204
  7. COUMADIN [Suspect]
     Active Substance: WARFARIN SODIUM
     Indication: PRODUCT USED FOR UNKNOWN INDICATION
     Route: 065
  8. BISOPROLOL [Concomitant]
     Active Substance: BISOPROLOL
  9. TYLENOL [Concomitant]
     Active Substance: ACETAMINOPHEN
  10. PREDNISONE. [Concomitant]
     Active Substance: PREDNISONE
  11. SPIRONOLACTON [Concomitant]
     Active Substance: SPIRONOLACTONE
  12. ACTEMRA [Suspect]
     Active Substance: TOCILIZUMAB
     Route: 042
     Dates: start: 20160818
  13. FOLIC ACID. [Concomitant]
     Active Substance: FOLIC ACID

REACTIONS (39)
  - Oxygen saturation decreased [Unknown]
  - Limb injury [Unknown]
  - Wound [Not Recovered/Not Resolved]
  - Vein disorder [Unknown]
  - Ocular hyperaemia [Unknown]
  - Hypokalaemia [Unknown]
  - Internal haemorrhage [Unknown]
  - Weight decreased [Unknown]
  - Arthralgia [Not Recovered/Not Resolved]
  - Heart rate decreased [Unknown]
  - Peripheral swelling [Unknown]
  - Eye disorder [Not Recovered/Not Resolved]
  - Fatigue [Unknown]
  - Fall [Unknown]
  - Contusion [Unknown]
  - Cataract [Not Recovered/Not Resolved]
  - Eye discharge [Not Recovered/Not Resolved]
  - Blood pressure systolic increased [Unknown]
  - Infusion related reaction [Unknown]
  - Skin graft [Not Recovered/Not Resolved]
  - Fatigue [Not Recovered/Not Resolved]
  - Abdominal pain [Recovered/Resolved]
  - Heart rate decreased [Unknown]
  - Rash erythematous [Unknown]
  - Death [Fatal]
  - Diabetes mellitus [Not Recovered/Not Resolved]
  - Septic shock [Not Recovered/Not Resolved]
  - Localised infection [Recovering/Resolving]
  - Laceration [Recovering/Resolving]
  - Wound haemorrhage [Recovered/Resolved]
  - Bronchitis [Recovered/Resolved]
  - Body temperature decreased [Unknown]
  - Haematoma [Unknown]
  - Limb injury [Recovering/Resolving]
  - Blood pressure increased [Unknown]
  - Pain in extremity [Unknown]
  - Weight increased [Recovered/Resolved]
  - Blood pressure increased [Unknown]
  - Parotitis [Unknown]

NARRATIVE: CASE EVENT DATE: 20150204
